FAERS Safety Report 4373000-8 (Version None)
Quarter: 2004Q2

REPORT INFORMATION
  Report Type: 
  Country: None (occurrence: None)
  Receive Date: 20040603
  Receipt Date: 20040519
  Transmission Date: 20050107
  Serious: Yes (Hospitalization, Other)
  Sender: FDA-Public Use
  Company Number: USA040568042

PATIENT
  Age: 69 Year
  Sex: Female

DRUGS (13)
  1. FORTEO [Suspect]
     Indication: OSTEOPOROSIS
     Dosage: 20 UG/1 DAY
     Dates: start: 20030721
  2. PREVACID [Concomitant]
  3. ZELNORM (ZELNORM) [Concomitant]
  4. FUROSEMIDE [Concomitant]
  5. CYCLOBENZAPRINE [Concomitant]
  6. COLCHICINE [Concomitant]
  7. NIFEREX 150 FORTE [Concomitant]
  8. ENDOCET [Concomitant]
  9. DURAGESIC [Concomitant]
  10. VITAMIN B-12 [Concomitant]
  11. CALCIUM [Concomitant]
  12. MULTI-VITAMIN [Concomitant]
  13. INSULIN [Concomitant]

REACTIONS (2)
  - HIP FRACTURE [None]
  - PHARMACEUTICAL PRODUCT COMPLAINT [None]
